FAERS Safety Report 4746518-3 (Version None)
Quarter: 2005Q3

REPORT INFORMATION
  Report Type: 
  Country: None (occurrence: None)
  Receive Date: 20050815
  Receipt Date: 20050803
  Transmission Date: 20060218
  Serious: Yes (Death, Hospitalization)
  Sender: FDA-Public Use
  Company Number: 2005-0008532

PATIENT
  Sex: Female

DRUGS (3)
  1. TRUVADA [Suspect]
  2. EFAVIRENZ (EFAVIRENZ) [Concomitant]
  3. VENLAFAXINE HCL [Concomitant]

REACTIONS (1)
  - HEPATIC FAILURE [None]
